FAERS Safety Report 6999889-1 (Version None)
Quarter: 2010Q3

REPORT INFORMATION
  Report Type: 
  Country: None (occurrence: None)
  Receive Date: 20100920
  Receipt Date: 20070809
  Transmission Date: 20110219
  Serious: Yes (Other)
  Sender: FDA-Public Use
  Company Number: US-ASTRAZENECA-2006UW26084

PATIENT
  Age: 51 Year
  Sex: Female
  Weight: 90.3 kg

DRUGS (10)
  1. SEROQUEL [Suspect]
     Indication: DEPRESSION
     Route: 048
     Dates: start: 20040101, end: 20060101
  2. SEROQUEL [Suspect]
     Indication: GENERALISED ANXIETY DISORDER
     Route: 048
     Dates: start: 20040101, end: 20060101
  3. SEROQUEL [Suspect]
     Route: 048
     Dates: start: 20041115
  4. SEROQUEL [Suspect]
     Route: 048
     Dates: start: 20041115
  5. ZOCOR [Concomitant]
     Indication: BLOOD CHOLESTEROL INCREASED
     Dates: start: 20040112
  6. KLONOPIN [Concomitant]
     Indication: GENERALISED ANXIETY DISORDER
     Dosage: 1 MG DISPENSED, 1 MG QID
     Dates: start: 20001209
  7. TOPAMAX [Concomitant]
     Indication: CONVULSION
  8. DILANTIN [Concomitant]
     Indication: CONVULSION
     Dates: start: 19950516
  9. DILANTIN [Concomitant]
     Indication: LOSS OF CONSCIOUSNESS
     Dates: start: 19950516
  10. DILANTIN [Concomitant]
     Indication: STRESS
     Dates: start: 19950516

REACTIONS (6)
  - BLOOD CHOLESTEROL INCREASED [None]
  - DIABETES MELLITUS [None]
  - GLUCOSE TOLERANCE IMPAIRED [None]
  - KETOACIDOSIS [None]
  - PANCREATITIS [None]
  - TYPE 2 DIABETES MELLITUS [None]
